FAERS Safety Report 6265933-2 (Version None)
Quarter: 2009Q3

REPORT INFORMATION
  Report Type: 
  Country: None (occurrence: None)
  Receive Date: 20090709
  Receipt Date: 20090709
  Transmission Date: 20100115
  Serious: Yes (Hospitalization)
  Sender: FDA-Public Use
  Company Number: None

PATIENT
  Age: 23 Month
  Sex: Female
  Weight: 11 kg

DRUGS (2)
  1. PHENOBARBITAL 20MG/5ML QUALITEST [Suspect]
     Indication: SIMPLE PARTIAL SEIZURES
     Dosage: 33MG TWICE DAILY PO
     Route: 048
     Dates: start: 20090625, end: 20090707
  2. VALPROIC ACID 100MG/ML ABBOTT [Suspect]
     Indication: SIMPLE PARTIAL SEIZURES
     Dosage: 110MG EVERY 6 HOURS IV
     Route: 042
     Dates: start: 20090624, end: 20090704

REACTIONS (1)
  - RASH GENERALISED [None]
